FAERS Safety Report 23694993 (Version 2)
Quarter: 2024Q3

REPORT INFORMATION
  Report Type: Spontaneous
  Country: JP (occurrence: JP)
  Receive Date: 20240402
  Receipt Date: 20240702
  Transmission Date: 20241016
  Serious: Yes (Other)
  Sender: AMGEN
  Company Number: JP-AMGEN-JPNSP2024061923

PATIENT
  Sex: Male

DRUGS (2)
  1. BLINCYTO [Suspect]
     Active Substance: BLINATUMOMAB
     Indication: B precursor type acute leukaemia
     Dosage: 9 MICROGRAM, QD, 24-HR CONTINOUS DRIP INFUSION
     Route: 042
     Dates: start: 20230922
  2. BLINCYTO [Suspect]
     Active Substance: BLINATUMOMAB
     Dosage: 9 MICROGRAM, QD, 24-HR CONTINOUS DRIP INFUSION
     Route: 042
     Dates: start: 20240301

REACTIONS (1)
  - CSF lymphocyte count increased [Recovered/Resolved]
